FAERS Safety Report 8095924-0 (Version None)
Quarter: 2012Q1

REPORT INFORMATION
  Report Type: 
  Country: None (occurrence: None)
  Receive Date: 20120129
  Receipt Date: 20111222
  Transmission Date: 20120608
  Serious: No
  Sender: FDA-Public Use
  Company Number: US-ABBOTT-11P-163-0886695-00

PATIENT
  Age: 70 Year
  Sex: Female

DRUGS (18)
  1. METOPROLOL TARTRATE [Concomitant]
     Indication: CARDIAC DISORDER
     Dosage: AFTER HEART ATTACK 11 DEC 2010, DAILY
  2. PROBIOTICS OTC [Concomitant]
     Indication: CROHN'S DISEASE
     Dosage: DAILY
  3. FLAXSEED OIL [Concomitant]
     Indication: MEDICAL DIET
     Dosage: DAILY
  4. ASPIRIN [Concomitant]
     Indication: THROMBOSIS PROPHYLAXIS
     Dosage: DAILY
  5. CALCIUM CITRATE [Concomitant]
     Indication: OSTEOPOROSIS
     Dosage: DAILY
  6. VAGAFEM [Concomitant]
     Indication: VULVOVAGINAL DRYNESS
  7. VITAMIN D [Concomitant]
     Indication: OSTEOPOROSIS
  8. HUMIRA [Suspect]
  9. IMODIUM [Concomitant]
     Indication: DIARRHOEA
  10. SINGULAIR [Concomitant]
     Indication: SEASONAL ALLERGY
     Dosage: AT BEDTIME
  11. LATAROPROST EYE DROPS [Concomitant]
     Indication: GLAUCOMA
     Dosage: 1 GT OU AT BEDTIME
  12. ACETAMINOPHEN [Concomitant]
  13. BUTALBITAL [Concomitant]
     Indication: HEADACHE
  14. HUMIRA [Suspect]
     Indication: CROHN'S DISEASE
     Dosage: 160MG 20 DEC 2011, 80MG DUE 03 JAN 2012
     Dates: start: 20111220
  15. ACETAMINOPHEN [Concomitant]
     Indication: PAIN
     Dosage: OVER THE COUNTER
  16. MULTIVITAMIN [Concomitant]
     Indication: VITAMIN SUPPLEMENTATION
     Dosage: DAILY
  17. PEPCID [Concomitant]
     Indication: DYSPEPSIA
     Dosage: DAILY, OVER THE COUNTER
  18. CALCIUM CARBONATE [Concomitant]
     Indication: DYSPEPSIA
     Dosage: OVER THE COUNTER

REACTIONS (1)
  - INJECTION SITE PAIN [None]
